FAERS Safety Report 9416699 (Version 1)
Quarter: 2013Q3

REPORT INFORMATION
  Report Type: Spontaneous
  Country: CA (occurrence: None)
  Receive Date: 20130719
  Receipt Date: 20130719
  Transmission Date: 20140515
  Serious: Yes (Hospitalization)
  Sender: FDA-Public Use
  Company Number: 2013CA0281

PATIENT
  Age: 74 Year
  Sex: Male

DRUGS (9)
  1. KINERET (ANAKINRA), NOT AVAILABLE [Suspect]
     Indication: JUVENILE IDIOPATHIC ARTHRITIS
     Route: 058
     Dates: start: 20130609
  2. KINERET (ANAKINRA), NOT AVAILABLE [Suspect]
     Route: 058
     Dates: start: 20130609
  3. RISEDRONATE [Suspect]
  4. METHOTREXATE (METHOTREXATE) (METHOTREXATE) [Concomitant]
  5. PREDNISONE (PREDNISONE) (PREDNISONE) [Concomitant]
  6. HYDROXYQUINE (HYDROXYCHLOROQUINE SULFATE )(HYDROXYCHLOROQUINE SULFATE) [Concomitant]
  7. METOPROLOL (METPROLOL) (METOPROLOL) [Concomitant]
  8. ENBREL (ETANERCEPT) (ETANERCEPT) [Concomitant]
  9. LEUCORVORIN (CALCIUM FOLINATE) (CALCIUM FOLINATE) [Concomitant]

REACTIONS (2)
  - Pyrexia [None]
  - Asthenia [None]
